FAERS Safety Report 14423785 (Version 2)
Quarter: 2018Q1

REPORT INFORMATION
  Report Type: Spontaneous
  Country: JP (occurrence: JP)
  Receive Date: 20180123
  Receipt Date: 20180125
  Transmission Date: 20180509
  Serious: Yes (Life-Threatening)
  Sender: FDA-Public Use
  Company Number: JP-ALK-ABELLO A/S-2018AA000129

PATIENT

DRUGS (1)
  1. MITICURE MITE SUBLINGUAL TABLET [Suspect]
     Active Substance: DERMATOPHAGOIDES FARINAE\DERMATOPHAGOIDES PTERONYSSINUS

REACTIONS (3)
  - Overdose [Recovered/Resolved]
  - Intentional overdose [None]
  - Suicide attempt [Recovered/Resolved]
